FAERS Safety Report 5380588-7 (Version None)
Quarter: 2007Q3

REPORT INFORMATION
  Report Type: 
  Country: None (occurrence: None)
  Receive Date: 20070706
  Receipt Date: 20070625
  Transmission Date: 20080115
  Serious: Yes (Hospitalization)
  Sender: FDA-Public Use
  Company Number: PH-ASTRAZENECA-2007AP03864

PATIENT
  Age: 65 Year
  Sex: Female

DRUGS (2)
  1. MERONEM [Suspect]
     Indication: PYREXIA
     Route: 042
     Dates: start: 20070623, end: 20070624
  2. CEFUROXIME [Concomitant]
     Dates: end: 20070623

REACTIONS (1)
  - TREMOR [None]
